FAERS Safety Report 14081319 (Version 1)
Quarter: 2017Q4

REPORT INFORMATION
  Report Type: Spontaneous
  Country: US (occurrence: None)
  Receive Date: 20171012
  Receipt Date: 20171012
  Transmission Date: 20180321
  Serious: No
  Sender: FDA-Public Use
  Company Number: None

PATIENT
  Age: 74 Year
  Sex: Female
  Weight: 61.23 kg

DRUGS (1)
  1. PROLIA [Suspect]
     Active Substance: DENOSUMAB
     Indication: PRODUCT USED FOR UNKNOWN INDICATION
     Dosage: 60MG Q6MO SUBQ
     Route: 058
     Dates: start: 20170407

REACTIONS (4)
  - Fall [None]
  - Nightmare [None]
  - Balance disorder [None]
  - Hand fracture [None]

NARRATIVE: CASE EVENT DATE: 20170427
